FAERS Safety Report 21206695 (Version 1)
Quarter: 2022Q3

REPORT INFORMATION
  Report Type: Spontaneous
  Country: CA (occurrence: CA)
  Receive Date: 20220812
  Receipt Date: 20220812
  Transmission Date: 20221027
  Serious: Yes (Hospitalization)
  Sender: FDA-Public Use
  Company Number: CA-MYLANLABS-2022M1085845

PATIENT
  Age: 32 Year
  Sex: Female

DRUGS (1)
  1. DESOGESTREL\ETHINYL ESTRADIOL [Suspect]
     Active Substance: DESOGESTREL\ETHINYL ESTRADIOL
     Indication: Product used for unknown indication
     Dosage: UNK
     Route: 065

REACTIONS (6)
  - Troponin increased [Recovered/Resolved]
  - Dyspnoea [Recovered/Resolved]
  - Fibrin D dimer increased [Recovered/Resolved]
  - Tachycardia [Recovered/Resolved]
  - Pulmonary embolism [Recovered/Resolved]
  - Chest pain [Recovered/Resolved]
